FAERS Safety Report 10344948 (Version 2)
Quarter: 2014Q4

REPORT INFORMATION
  Report Type: Spontaneous
  Country: US (occurrence: US)
  Receive Date: 20140728
  Receipt Date: 20141008
  Transmission Date: 20150528
  Serious: Yes (Death)
  Sender: FDA-Public Use
  Company Number: US-PFIZER INC-2014206811

PATIENT

DRUGS (1)
  1. SUTENT [Suspect]
     Active Substance: SUNITINIB MALATE
     Indication: RENAL CELL CARCINOMA
     Dosage: UNK

REACTIONS (6)
  - Bedridden [Unknown]
  - Dysphagia [Unknown]
  - Disease progression [Fatal]
  - Renal cancer [Fatal]
  - Urinary tract infection [Fatal]
  - Dehydration [Fatal]
